FAERS Safety Report 18353623 (Version 1)
Quarter: 2020Q4

REPORT INFORMATION
  Report Type: Spontaneous
  Country: US (occurrence: US)
  Receive Date: 20201006
  Receipt Date: 20201006
  Transmission Date: 20210114
  Serious: No
  Sender: FDA-Public Use
  Company Number: US-ROCHE-2426861

PATIENT
  Sex: Male

DRUGS (2)
  1. ZELBORAF [Suspect]
     Active Substance: VEMURAFENIB
     Indication: METASTASIS
     Dosage: 4 TABLET EVERY 12 HOURS
     Route: 065
  2. COTELLIC [Suspect]
     Active Substance: COBIMETINIB
     Indication: PRODUCT USED FOR UNKNOWN INDICATION
     Route: 065
     Dates: start: 20190828

REACTIONS (7)
  - Flushing [Unknown]
  - Myalgia [Unknown]
  - Dry skin [Unknown]
  - Blood sodium decreased [Unknown]
  - Blood pressure increased [Unknown]
  - Irritability [Unknown]
  - Mouth ulceration [Unknown]
